FAERS Safety Report 26219046 (Version 1)
Quarter: 2025Q4

REPORT INFORMATION
  Report Type: Spontaneous
  Country: EU (occurrence: EU)
  Receive Date: 20251231
  Receipt Date: 20251231
  Transmission Date: 20260118
  Serious: Yes (Hospitalization, Congenital Anomaly, Other)
  Sender: MYLAN
  Company Number: None

PATIENT
  Sex: Female
  Weight: 2.24 kg

DRUGS (24)
  1. MIRTAZAPINE [Suspect]
     Active Substance: MIRTAZAPINE
     Indication: Nightmare
     Dosage: 15 MILLIGRAM, QD (15 MG/DAY)
     Dates: start: 20250129, end: 202503
  2. MIRTAZAPINE [Suspect]
     Active Substance: MIRTAZAPINE
     Dosage: 15 MILLIGRAM, QD (15 MG/DAY)
     Dates: start: 20250129, end: 202503
  3. MIRTAZAPINE [Suspect]
     Active Substance: MIRTAZAPINE
     Dosage: 15 MILLIGRAM, QD (15 MG/DAY)
     Route: 064
     Dates: start: 20250129, end: 202503
  4. MIRTAZAPINE [Suspect]
     Active Substance: MIRTAZAPINE
     Dosage: 15 MILLIGRAM, QD (15 MG/DAY)
     Route: 064
     Dates: start: 20250129, end: 202503
  5. MIRTAZAPINE [Suspect]
     Active Substance: MIRTAZAPINE
     Dosage: 15 MILLIGRAM, QD (15 MG/DAY)
     Dates: start: 20250129, end: 202503
  6. MIRTAZAPINE [Suspect]
     Active Substance: MIRTAZAPINE
     Dosage: 15 MILLIGRAM, QD (15 MG/DAY)
     Dates: start: 20250129, end: 202503
  7. MIRTAZAPINE [Suspect]
     Active Substance: MIRTAZAPINE
     Dosage: 15 MILLIGRAM, QD (15 MG/DAY)
     Route: 064
     Dates: start: 20250129, end: 202503
  8. MIRTAZAPINE [Suspect]
     Active Substance: MIRTAZAPINE
     Dosage: 15 MILLIGRAM, QD (15 MG/DAY)
     Route: 064
     Dates: start: 20250129, end: 202503
  9. ATARAX [Suspect]
     Active Substance: HYDROXYZINE HYDROCHLORIDE
     Indication: Initial insomnia
     Dosage: 25 MILLIGRAM, QD (25 MG/DAY) (SCORED FILM-COATED TABLET)
     Dates: start: 20250129, end: 20250616
  10. ATARAX [Suspect]
     Active Substance: HYDROXYZINE HYDROCHLORIDE
     Dosage: 25 MILLIGRAM, QD (25 MG/DAY) (SCORED FILM-COATED TABLET)
     Dates: start: 20250129, end: 20250616
  11. ATARAX [Suspect]
     Active Substance: HYDROXYZINE HYDROCHLORIDE
     Dosage: 25 MILLIGRAM, QD (25 MG/DAY) (SCORED FILM-COATED TABLET)
     Route: 064
     Dates: start: 20250129, end: 20250616
  12. ATARAX [Suspect]
     Active Substance: HYDROXYZINE HYDROCHLORIDE
     Dosage: 25 MILLIGRAM, QD (25 MG/DAY) (SCORED FILM-COATED TABLET)
     Route: 064
     Dates: start: 20250129, end: 20250616
  13. ATARAX [Suspect]
     Active Substance: HYDROXYZINE HYDROCHLORIDE
     Dosage: 25 MILLIGRAM, QD (25 MG/DAY) (SCORED FILM-COATED TABLET)
     Dates: start: 20250129, end: 20250616
  14. ATARAX [Suspect]
     Active Substance: HYDROXYZINE HYDROCHLORIDE
     Dosage: 25 MILLIGRAM, QD (25 MG/DAY) (SCORED FILM-COATED TABLET)
     Dates: start: 20250129, end: 20250616
  15. ATARAX [Suspect]
     Active Substance: HYDROXYZINE HYDROCHLORIDE
     Dosage: 25 MILLIGRAM, QD (25 MG/DAY) (SCORED FILM-COATED TABLET)
     Route: 064
     Dates: start: 20250129, end: 20250616
  16. ATARAX [Suspect]
     Active Substance: HYDROXYZINE HYDROCHLORIDE
     Dosage: 25 MILLIGRAM, QD (25 MG/DAY) (SCORED FILM-COATED TABLET)
     Route: 064
     Dates: start: 20250129, end: 20250616
  17. OXAZEPAM [Suspect]
     Active Substance: OXAZEPAM
     Indication: Anxiety
     Dosage: 30 MILLIGRAM, PRN (10 MG/DAY + 10 TO 20 MG/DAY AS NEEDED)
     Dates: start: 20250327, end: 20250616
  18. OXAZEPAM [Suspect]
     Active Substance: OXAZEPAM
     Dosage: 30 MILLIGRAM, PRN (10 MG/DAY + 10 TO 20 MG/DAY AS NEEDED)
     Dates: start: 20250327, end: 20250616
  19. OXAZEPAM [Suspect]
     Active Substance: OXAZEPAM
     Dosage: 30 MILLIGRAM, PRN (10 MG/DAY + 10 TO 20 MG/DAY AS NEEDED)
     Route: 064
     Dates: start: 20250327, end: 20250616
  20. OXAZEPAM [Suspect]
     Active Substance: OXAZEPAM
     Dosage: 30 MILLIGRAM, PRN (10 MG/DAY + 10 TO 20 MG/DAY AS NEEDED)
     Route: 064
     Dates: start: 20250327, end: 20250616
  21. OXAZEPAM [Suspect]
     Active Substance: OXAZEPAM
     Dosage: 30 MILLIGRAM, PRN (10 MG/DAY + 10 TO 20 MG/DAY AS NEEDED)
     Dates: start: 20250327, end: 20250616
  22. OXAZEPAM [Suspect]
     Active Substance: OXAZEPAM
     Dosage: 30 MILLIGRAM, PRN (10 MG/DAY + 10 TO 20 MG/DAY AS NEEDED)
     Dates: start: 20250327, end: 20250616
  23. OXAZEPAM [Suspect]
     Active Substance: OXAZEPAM
     Dosage: 30 MILLIGRAM, PRN (10 MG/DAY + 10 TO 20 MG/DAY AS NEEDED)
     Route: 064
     Dates: start: 20250327, end: 20250616
  24. OXAZEPAM [Suspect]
     Active Substance: OXAZEPAM
     Dosage: 30 MILLIGRAM, PRN (10 MG/DAY + 10 TO 20 MG/DAY AS NEEDED)
     Route: 064
     Dates: start: 20250327, end: 20250616

REACTIONS (4)
  - Microcephaly [Recovered/Resolved]
  - Immature respiratory system [Recovered/Resolved]
  - Foetal growth restriction [Recovered/Resolved]
  - Maternal exposure during pregnancy [Recovered/Resolved]

NARRATIVE: CASE EVENT DATE: 20250616
